FAERS Safety Report 6897944-8 (Version None)
Quarter: 2010Q3

REPORT INFORMATION
  Report Type: 
  Country: None (occurrence: None)
  Receive Date: 20100802
  Receipt Date: 20070813
  Transmission Date: 20110219
  Serious: Yes (Other)
  Sender: FDA-Public Use
  Company Number: US-PFIZER INC-2007065337

PATIENT
  Sex: Female
  Weight: 61.2 kg

DRUGS (9)
  1. LYRICA [Suspect]
     Indication: FIBROMYALGIA
     Dates: start: 20070712
  2. MORPHINE [Concomitant]
     Dates: start: 20040101, end: 20070701
  3. MELOXICAM [Concomitant]
     Dates: start: 20070701
  4. PERCOCET [Concomitant]
  5. VALIUM [Concomitant]
     Indication: ANXIETY
     Dates: end: 20070701
  6. BUSPAR [Concomitant]
     Indication: ANXIETY
     Dates: start: 20070725
  7. AMBIEN [Concomitant]
     Dates: start: 20070101
  8. SYNTHROID [Concomitant]
  9. ZANAFLEX [Concomitant]

REACTIONS (10)
  - AMNESIA [None]
  - ANXIETY [None]
  - CONFUSIONAL STATE [None]
  - FATIGUE [None]
  - FEELING ABNORMAL [None]
  - MUSCULAR WEAKNESS [None]
  - NERVOUSNESS [None]
  - PAIN [None]
  - SPINAL DISORDER [None]
  - TREMOR [None]
